FAERS Safety Report 15943618 (Version 1)
Quarter: 2019Q1

REPORT INFORMATION
  Report Type: Spontaneous
  Country: US (occurrence: US)
  Receive Date: 20190118
  Receipt Date: 20190118
  Transmission Date: 20190417
  Serious: Yes (Hospitalization)
  Sender: FDA-Public Use
  Company Number: None

PATIENT
  Age: 59 Year
  Sex: Female

DRUGS (9)
  1. NORCO [Concomitant]
     Active Substance: ACETAMINOPHEN\HYDROCODONE BITARTRATE
  2. EFFEXOR [Concomitant]
     Active Substance: VENLAFAXINE HYDROCHLORIDE
  3. FLAX SEED [Concomitant]
     Active Substance: FLAX SEED
  4. ALLOPURINOL. [Concomitant]
     Active Substance: ALLOPURINOL
  5. FOLIC ACID. [Concomitant]
     Active Substance: FOLIC ACID
  6. CHERRY. [Concomitant]
     Active Substance: CHERRY
  7. MULTIVITAMIN [Concomitant]
     Active Substance: VITAMINS
  8. EXJADE [Suspect]
     Active Substance: DEFERASIROX
     Indication: MYELOFIBROSIS
     Route: 048
  9. ATIVAN [Concomitant]
     Active Substance: LORAZEPAM

REACTIONS (2)
  - Salmonella sepsis [None]
  - Salmonellosis [None]

NARRATIVE: CASE EVENT DATE: 20181025
